FAERS Safety Report 23889352 (Version 1)
Quarter: 2024Q2

REPORT INFORMATION
  Report Type: Spontaneous
  Country: US (occurrence: None)
  Receive Date: 20240523
  Receipt Date: 20240523
  Transmission Date: 20240716
  Serious: No
  Sender: FDA-Public Use
  Company Number: None

PATIENT
  Age: 34 Year
  Sex: Female
  Weight: 64.35 kg

DRUGS (10)
  1. STELARA [Suspect]
     Active Substance: USTEKINUMAB
     Indication: Crohn^s disease
     Dates: start: 20240229
  2. LAMICTAL [Concomitant]
     Active Substance: LAMOTRIGINE
  3. REXULTI [Concomitant]
     Active Substance: BREXPIPRAZOLE
  4. KEPPRA [Concomitant]
     Active Substance: LEVETIRACETAM
  5. FOLIC ACID [Concomitant]
     Active Substance: FOLIC ACID
  6. PREVACID [Concomitant]
     Active Substance: LANSOPRAZOLE
  7. ROXICODONE [Concomitant]
     Active Substance: OXYCODONE HYDROCHLORIDE
  8. STELARA [Concomitant]
     Active Substance: USTEKINUMAB
  9. VITAMIN D NOS [Concomitant]
     Active Substance: CHOLECALCIFEROL\ERGOCALCIFEROL
  10. METHYLCOBALAMIN [Concomitant]
     Active Substance: METHYLCOBALAMIN

REACTIONS (3)
  - Hot flush [None]
  - Feeling hot [None]
  - Vomiting [None]

NARRATIVE: CASE EVENT DATE: 20240428
